FAERS Safety Report 19940983 (Version 1)
Quarter: 2021Q4

REPORT INFORMATION
  Report Type: Spontaneous
  Country: US (occurrence: US)
  Receive Date: 20211012
  Receipt Date: 20211012
  Transmission Date: 20220303
  Serious: No
  Sender: FDA-Public Use
  Company Number: US-DRREDDYS-SPO/USA/21/0142439

PATIENT
  Age: 32 Year
  Sex: Female

DRUGS (1)
  1. ACCUTANE [Suspect]
     Active Substance: ISOTRETINOIN
     Indication: Product used for unknown indication
     Dosage: RMA ISSUE DATE: 19/MAY/2021 12:00:00 AM,18/JUNE/2021 12:00:00 AM,15/JULY/2021 12:00:00 AM.

REACTIONS (1)
  - Drug intolerance [Unknown]
